FAERS Safety Report 19266992 (Version 4)
Quarter: 2021Q2

REPORT INFORMATION
  Report Type: Report from Study
  Country: CA (occurrence: CA)
  Receive Date: 20210517
  Receipt Date: 20210623
  Transmission Date: 20210717
  Serious: Yes (Death)
  Sender: FDA-Public Use
  Company Number: CA-MORPHOSYS AG-2021-MOR001083-CA

PATIENT
  Age: 77 Year
  Sex: Male
  Weight: 52.2 kg

DRUGS (9)
  1. AMIODARONE [Concomitant]
     Active Substance: AMIODARONE
     Indication: ATRIAL FIBRILLATION
     Dosage: 200 MILLIGRAM DIE
     Route: 048
  2. LACTATED RINGERS SOLUTION [Concomitant]
     Active Substance: CALCIUM CHLORIDE\POTASSIUM CHLORIDE\SODIUM CHLORIDE\SODIUM LACTATE
     Indication: BLOOD CREATININE INCREASED
     Dosage: 40 ML/H
     Dates: start: 20210507, end: 20210526
  3. GRASTOFIL [Concomitant]
     Active Substance: FILGRASTIM
     Indication: PROPHYLAXIS
     Dosage: 300 MICROGRAM
     Route: 058
     Dates: start: 20210501
  4. TAFASITAMAB [Suspect]
     Active Substance: TAFASITAMAB
     Indication: DIFFUSE LARGE B-CELL LYMPHOMA REFRACTORY
     Dosage: 12 MILLIGRAM/SQ. METER
     Route: 042
     Dates: start: 20210202, end: 20210511
  5. SODIUM CHLORIDE. [Concomitant]
     Active Substance: SODIUM CHLORIDE
     Indication: PRODUCT USED FOR UNKNOWN INDICATION
     Dosage: 500 MILLILITER ONCE
     Route: 042
     Dates: start: 20210501, end: 20210501
  6. BENDAMUSTINE [Suspect]
     Active Substance: BENDAMUSTINE
     Indication: DIFFUSE LARGE B-CELL LYMPHOMA REFRACTORY
     Dosage: 90 MILLIGRAM/SQ. METER
     Route: 042
     Dates: start: 20210203, end: 20210526
  7. GRASTOFIL [Concomitant]
     Active Substance: FILGRASTIM
     Dosage: 300 MICROGRAM
     Route: 058
     Dates: start: 20210515, end: 20210520
  8. ELIQUIS [Concomitant]
     Active Substance: APIXABAN
     Indication: ATRIAL FIBRILLATION
     Dosage: 10 MILLIGRAM DIE
     Route: 048
  9. SODIUM CHLORIDE + DEXTROSE [Concomitant]
     Indication: BLOOD CREATININE INCREASED
     Dosage: D 5 PERCENT PLUS NS 0.45 PERCENT
     Dates: start: 20210501, end: 20210503

REACTIONS (1)
  - Pneumonia [Fatal]

NARRATIVE: CASE EVENT DATE: 20210501
